FAERS Safety Report 13918842 (Version 2)
Quarter: 2017Q3

REPORT INFORMATION
  Report Type: Spontaneous
  Country: US (occurrence: US)
  Receive Date: 20170830
  Receipt Date: 20170911
  Transmission Date: 20171127
  Serious: Yes (Hospitalization, Other)
  Sender: FDA-Public Use
  Company Number: US-AUROBINDO-AUR-APL-2017-39483

PATIENT
  Age: 63 Year
  Sex: Female

DRUGS (6)
  1. OXYCODONE [Interacting]
     Active Substance: OXYCODONE
     Dosage: 15-30 MG, AS NEEDED.
     Route: 065
  2. OXYGEN. [Concomitant]
     Active Substance: OXYGEN
     Indication: HYPOXIA
     Dosage: 3 L, UNK
     Route: 065
  3. OXYCODONE [Suspect]
     Active Substance: OXYCODONE
     Indication: MUSCULOSKELETAL PAIN
     Dosage: 30 MG, UNK
     Route: 065
  4. PIPERACILLIN W/TAZOBACTAM          /01606301/ [Concomitant]
     Indication: PNEUMONIA FUNGAL
     Route: 065
  5. VORICONAZOLE. [Interacting]
     Active Substance: VORICONAZOLE
     Indication: PNEUMONIA FUNGAL
     Route: 065
  6. VANCOMYCIN [Concomitant]
     Active Substance: VANCOMYCIN
     Indication: PNEUMONIA FUNGAL
     Route: 042

REACTIONS (2)
  - Drug interaction [Recovering/Resolving]
  - Neurotoxicity [Recovering/Resolving]
